FAERS Safety Report 9168885 (Version 1)
Quarter: 2013Q1

REPORT INFORMATION
  Report Type: Spontaneous
  Country: US (occurrence: US)
  Receive Date: 20130318
  Receipt Date: 20130318
  Transmission Date: 20140127
  Serious: Yes (Hospitalization)
  Sender: FDA-Public Use
  Company Number: US-ROCHE-1202869

PATIENT
  Sex: Female

DRUGS (3)
  1. TAMIFLU [Suspect]
     Indication: INFLUENZA
     Route: 065
  2. BENADRYL [Concomitant]
     Indication: HYPERSENSITIVITY
  3. PREDNISONE [Concomitant]
     Indication: HYPERSENSITIVITY
     Route: 065

REACTIONS (4)
  - Local swelling [Unknown]
  - Eye swelling [Unknown]
  - Blood pressure increased [Unknown]
  - Lip swelling [Unknown]
